FAERS Safety Report 13058802 (Version 1)
Quarter: 2016Q4

REPORT INFORMATION
  Report Type: Other
  Country: US (occurrence: US)
  Receive Date: 20161223
  Receipt Date: 20161223
  Transmission Date: 20170207
  Serious: Yes (Other)
  Sender: FDA-Public Use
  Company Number: US-VELOXIS PHARMACEUTICALS-1061227

PATIENT
  Age: 21 Year
  Sex: Female

DRUGS (2)
  1. ENVARSUS XR [Suspect]
     Active Substance: TACROLIMUS
     Indication: SYSTEMIC LUPUS ERYTHEMATOSUS
  2. STEROIDS [Concomitant]
     Active Substance: UNSPECIFIED INGREDIENT

REACTIONS (6)
  - Posterior reversible encephalopathy syndrome [Unknown]
  - Azotaemia [Unknown]
  - Blood creatinine increased [Unknown]
  - Off label use [Unknown]
  - Anuria [Unknown]
  - Hypertension [Unknown]
